FAERS Safety Report 6890332-X (Version None)
Quarter: 2010Q3

REPORT INFORMATION
  Report Type: 
  Country: None (occurrence: None)
  Receive Date: 20100730
  Receipt Date: 20080928
  Transmission Date: 20110219
  Serious: No
  Sender: FDA-Public Use
  Company Number: US-PFIZER INC-2008082527

PATIENT
  Sex: Male

DRUGS (1)
  1. LIPITOR [Suspect]
     Dates: start: 20080925

REACTIONS (4)
  - BALANCE DISORDER [None]
  - PULSE ABNORMAL [None]
  - SOMNOLENCE [None]
  - VISUAL IMPAIRMENT [None]
